FAERS Safety Report 17722385 (Version 4)
Quarter: 2020Q4

REPORT INFORMATION
  Report Type: Spontaneous
  Country: US (occurrence: US)
  Receive Date: 20200429
  Receipt Date: 20201123
  Transmission Date: 20210113
  Serious: Yes (Other)
  Sender: FDA-Public Use
  Company Number: US-PFIZER INC-2020172539

PATIENT
  Age: 59 Year

DRUGS (2)
  1. FLECTOR [Suspect]
     Active Substance: DICLOFENAC EPOLAMINE
     Indication: ARTHRALGIA
  2. FLECTOR [Suspect]
     Active Substance: DICLOFENAC EPOLAMINE
     Indication: ARTHRALGIA
     Dosage: 1 DF, 2X/DAY (1 PATCH EVERY 12 HOURS)
     Route: 061

REACTIONS (5)
  - Visual impairment [Unknown]
  - Muscle rupture [Unknown]
  - Confusional state [Unknown]
  - Arthralgia [Unknown]
  - Bursitis [Unknown]
